FAERS Safety Report 9933338 (Version 2)
Quarter: 2014Q1

REPORT INFORMATION
  Report Type: Report from Study
  Country: US (occurrence: US)
  Receive Date: 20140228
  Receipt Date: 20140228
  Transmission Date: 20141002
  Serious: No
  Sender: FDA-Public Use
  Company Number: US-MYLANLABS-2013S1005654

PATIENT
  Sex: Male

DRUGS (2)
  1. CLARAVIS [Suspect]
     Indication: ACNE
     Dates: end: 201212
  2. AMNESTEEM CAPSULES [Suspect]
     Indication: ACNE
     Dates: start: 201301, end: 20130301

REACTIONS (1)
  - Depression [Recovered/Resolved]
